FAERS Safety Report 18345095 (Version 2)
Quarter: 2020Q4

REPORT INFORMATION
  Report Type: Report from Study
  Country: None (occurrence: US)
  Receive Date: 20201005
  Receipt Date: 20201012
  Transmission Date: 20210114
  Serious: Yes (Hospitalization)
  Sender: FDA-Public Use
  Company Number: US-ABBVIE-20K-163-3590556-00

PATIENT
  Sex: Male
  Weight: 111.23 kg

DRUGS (1)
  1. RINVOQ [Suspect]
     Active Substance: UPADACITINIB
     Indication: RHEUMATOID ARTHRITIS
     Route: 048
     Dates: start: 202006, end: 202009

REACTIONS (6)
  - Pneumonia [Recovering/Resolving]
  - Arthralgia [Recovering/Resolving]
  - COVID-19 [Recovering/Resolving]
  - Platelet count decreased [Recovering/Resolving]
  - Rheumatoid arthritis [Unknown]
  - Back pain [Recovering/Resolving]

NARRATIVE: CASE EVENT DATE: 2020
